FAERS Safety Report 7633414-7 (Version None)
Quarter: 2011Q3

REPORT INFORMATION
  Report Type: 
  Country: None (occurrence: None)
  Receive Date: 20110725
  Receipt Date: 20110719
  Transmission Date: 20111222
  Serious: Yes (Death)
  Sender: FDA-Public Use
  Company Number: TW-PFIZER INC-2011163795

PATIENT

DRUGS (1)
  1. TYGACIL [Suspect]
     Indication: ACINETOBACTER INFECTION
     Dosage: UNK

REACTIONS (1)
  - JAUNDICE [None]
